FAERS Safety Report 16838665 (Version 1)
Quarter: 2019Q4

REPORT INFORMATION
  Report Type: Spontaneous
  Country: US (occurrence: US)
  Receive Date: 20190920
  Receipt Date: 20190920
  Transmission Date: 20200122
  Serious: Yes (Hospitalization)
  Sender: FDA-Public Use
  Company Number: None

PATIENT
  Age: 37 Year
  Sex: Male

DRUGS (7)
  1. CYANOCOBALAM [Concomitant]
     Active Substance: CYANOCOBALAMIN
  2. PREDNISONE. [Concomitant]
     Active Substance: PREDNISONE
  3. ATORVASTATIN [Concomitant]
     Active Substance: ATORVASTATIN
  4. STELARA [Suspect]
     Active Substance: USTEKINUMAB
     Indication: CROHN^S DISEASE
     Dosage: ?          OTHER FREQUENCY:EVERY 4 WEEKS;?
     Route: 058
     Dates: start: 20190520
  5. BUDESONIDE. [Concomitant]
     Active Substance: BUDESONIDE
  6. OFLOXACIN. [Concomitant]
     Active Substance: OFLOXACIN
  7. ALINIA [Concomitant]
     Active Substance: NITAZOXANIDE

REACTIONS (3)
  - Pain in extremity [None]
  - Arthralgia [None]
  - Crohn^s disease [None]

NARRATIVE: CASE EVENT DATE: 20190919
